FAERS Safety Report 22593729 (Version 1)
Quarter: 2023Q2

REPORT INFORMATION
  Report Type: Spontaneous
  Country: FR (occurrence: FR)
  Receive Date: 20230613
  Receipt Date: 20230613
  Transmission Date: 20230721
  Serious: Yes (Hospitalization, Other)
  Sender: FDA-Public Use
  Company Number: None

PATIENT

DRUGS (8)
  1. AMOXICILLIN [Suspect]
     Active Substance: AMOXICILLIN
     Indication: Prophylaxis
     Dosage: 2000 MG, QD
     Route: 048
     Dates: start: 202106, end: 202301
  2. VALACYCLOVIR HYDROCHLORIDE [Suspect]
     Active Substance: VALACYCLOVIR HYDROCHLORIDE
     Indication: Prophylaxis
     Dosage: 2000 MG, QD
     Route: 048
     Dates: start: 202101, end: 202301
  3. RUXOLITINIB [Suspect]
     Active Substance: RUXOLITINIB
     Indication: Myelofibrosis
     Dosage: 5 MG, QD
     Route: 048
     Dates: start: 20210215, end: 20210519
  4. METHOTREXATE [Suspect]
     Active Substance: METHOTREXATE
     Indication: Myelofibrosis
     Dosage: 70 MG, SINGLE
     Route: 042
     Dates: start: 20210526, end: 20210531
  5. BACTRIM [Suspect]
     Active Substance: SULFAMETHOXAZOLE\TRIMETHOPRIM
     Indication: Prophylaxis
     Dosage: 3 DF, WE
     Route: 048
     Dates: start: 202105, end: 202301
  6. FLUDARABINE PHOSPHATE [Suspect]
     Active Substance: FLUDARABINE PHOSPHATE
     Indication: Myelofibrosis
     Dosage: 50 MG, QD
     Route: 042
     Dates: start: 20210521, end: 20210523
  7. LEVOLEUCOVORIN CALCIUM [Suspect]
     Active Substance: LEVOLEUCOVORIN CALCIUM
     Indication: Prophylaxis
     Dosage: 3 DF, WE
     Route: 048
     Dates: start: 202105, end: 202301
  8. MELPHALAN [Suspect]
     Active Substance: MELPHALAN
     Indication: Myelofibrosis
     Dosage: 270 MG, SINGLE
     Route: 042
     Dates: start: 20210521, end: 20210521

REACTIONS (1)
  - Pulmonary arterial hypertension [Not Recovered/Not Resolved]
